FAERS Safety Report 4482911-4 (Version None)
Quarter: 2004Q4

REPORT INFORMATION
  Report Type: 
  Country: None (occurrence: None)
  Receive Date: 20041022
  Receipt Date: 20041001
  Transmission Date: 20050328
  Serious: Yes (Other)
  Sender: FDA-Public Use
  Company Number: US-MERCK-0410USA00302

PATIENT
  Sex: Female

DRUGS (6)
  1. VIOXX [Suspect]
     Indication: BACK PAIN
     Route: 048
     Dates: start: 20040501, end: 20041001
  2. BEXTRA [Concomitant]
     Indication: BACK PAIN
     Route: 065
     Dates: start: 20040501
  3. METOPROLOL [Concomitant]
     Route: 065
  4. LASIX [Concomitant]
     Route: 065
  5. POTASSIUM (UNSPECIFIED) [Concomitant]
     Route: 065
  6. INSULIN [Concomitant]
     Route: 065

REACTIONS (3)
  - CEREBROVASCULAR ACCIDENT [None]
  - DIZZINESS [None]
  - PAIN IN EXTREMITY [None]
